FAERS Safety Report 6071533-X (Version None)
Quarter: 2009Q1

REPORT INFORMATION
  Report Type: 
  Country: None (occurrence: None)
  Receive Date: 20090210
  Receipt Date: 20090203
  Transmission Date: 20090719
  Serious: Yes (Other)
  Sender: FDA-Public Use
  Company Number: CA-BAYER-200837887NA

PATIENT
  Age: 34 Year
  Sex: Female
  Weight: 67 kg

DRUGS (2)
  1. BETASERON [Suspect]
     Indication: MULTIPLE SCLEROSIS
     Dosage: TOTAL DAILY DOSE: 8 MIU
     Route: 058
  2. CONTRACEPTIVE [Concomitant]

REACTIONS (8)
  - ANTINUCLEAR ANTIBODY POSITIVE [None]
  - BLOOD IMMUNOGLOBULIN G INCREASED [None]
  - ECCHYMOSIS [None]
  - IDIOPATHIC THROMBOCYTOPENIC PURPURA [None]
  - MENORRHAGIA [None]
  - PLATELET COUNT DECREASED [None]
  - RHEUMATOID FACTOR POSITIVE [None]
  - WHITE BLOOD CELL COUNT INCREASED [None]
